FAERS Safety Report 9166722 (Version 1)
Quarter: 2013Q1

REPORT INFORMATION
  Report Type: Spontaneous
  Country: US (occurrence: US)
  Receive Date: 20130316
  Receipt Date: 20130316
  Transmission Date: 20140127
  Serious: No
  Sender: FDA-Public Use
  Company Number: US-009507513-1303USA007193

PATIENT
  Age: 32 Year
  Sex: Female

DRUGS (5)
  1. BOCEPREVIR [Suspect]
  2. PEGASYS [Suspect]
     Indication: CHRONIC HEPATITIS C
     Dosage: 180 MG, QD
     Route: 058
     Dates: start: 20120910
  3. RIBASPHERE [Suspect]
     Indication: CHRONIC HEPATITIS C
     Dosage: UNK
     Route: 048
     Dates: start: 20120910
  4. TOPAMAX [Concomitant]
  5. TYLENOL [Concomitant]

REACTIONS (19)
  - Retching [Unknown]
  - Malaise [Unknown]
  - Influenza like illness [Unknown]
  - Fatigue [Unknown]
  - Pain [Unknown]
  - Nausea [Unknown]
  - Decreased appetite [Unknown]
  - Feeding disorder [Unknown]
  - Headache [Unknown]
  - Vomiting [Unknown]
  - Dyspnoea exertional [Unknown]
  - Fatigue [Unknown]
  - Frustration [Unknown]
  - Anger [Unknown]
  - Irritability [Unknown]
  - Fatigue [Unknown]
  - White blood cell count decreased [Unknown]
  - Weight decreased [Unknown]
  - Haemoglobin decreased [Unknown]
